FAERS Safety Report 5817753-8 (Version None)
Quarter: 2008Q3

REPORT INFORMATION
  Report Type: 
  Country: None (occurrence: None)
  Receive Date: 20080722
  Receipt Date: 20080718
  Transmission Date: 20090109
  Serious: Yes (Other)
  Sender: FDA-Public Use
  Company Number: PHEH2006US06679

PATIENT
  Sex: Female
  Weight: 90.703 kg

DRUGS (8)
  1. COMBIPATCH [Suspect]
     Indication: MENOPAUSE
     Route: 062
  2. ESTRADERM [Suspect]
     Indication: MENOPAUSE
     Dosage: 0.1 MG
     Route: 062
     Dates: start: 19870101, end: 20040801
  3. PROVERA [Suspect]
     Indication: MENOPAUSE
     Dosage: 2.5 MG
     Dates: start: 19950101, end: 19970101
  4. MEDROXYPROGESTERONE [Suspect]
  5. CLIMARA [Suspect]
  6. ZOLOFT [Concomitant]
  7. PAXIL [Concomitant]
  8. WELLBUTRIN [Concomitant]

REACTIONS (14)
  - ANXIETY [None]
  - ARTHRITIS [None]
  - BIOPSY BREAST [None]
  - BREAST CANCER [None]
  - CHEST PAIN [None]
  - DYSPNOEA EXERTIONAL [None]
  - MALIGNANT BREAST LUMP REMOVAL [None]
  - MAMMOGRAM ABNORMAL [None]
  - MASTECTOMY [None]
  - OESTROGEN RECEPTOR ASSAY POSITIVE [None]
  - PROGESTERONE RECEPTOR ASSAY POSITIVE [None]
  - SMEAR CERVIX ABNORMAL [None]
  - SUPRAVENTRICULAR EXTRASYSTOLES [None]
  - VENTRICULAR EXTRASYSTOLES [None]
